FAERS Safety Report 6538325-6 (Version None)
Quarter: 2010Q1

REPORT INFORMATION
  Report Type: 
  Country: None (occurrence: None)
  Receive Date: 20100112
  Receipt Date: 20100112
  Transmission Date: 20100710
  Serious: Yes (Life-Threatening, Hospitalization, Disabling)
  Sender: FDA-Public Use
  Company Number: None

PATIENT
  Age: 53 Year
  Sex: Female
  Weight: 116.1208 kg

DRUGS (5)
  1. NITROQUICK 0.4MG ETHEX [Suspect]
     Indication: ANGINA PECTORIS
     Dosage: 1 EVERY 15 MINUTES SL
     Route: 060
     Dates: start: 20030801, end: 20100111
  2. NITROQUICK 0.4MG ETHEX [Suspect]
     Indication: CHEST DISCOMFORT
     Dosage: 1 EVERY 15 MINUTES SL
     Route: 060
     Dates: start: 20030801, end: 20100111
  3. NITROQUICK 0.4MG ETHEX [Suspect]
     Indication: CHEST PAIN
     Dosage: 1 EVERY 15 MINUTES SL
     Route: 060
     Dates: start: 20030801, end: 20100111
  4. NITROQUICK 0.4MG ETHEX [Suspect]
     Indication: MYOCARDIAL INFARCTION
     Dosage: 1 EVERY 15 MINUTES SL
     Route: 060
     Dates: start: 20030801, end: 20100111
  5. METOPROLOL 50MG SA UNKNOWN- [Suspect]
     Indication: CARDIAC FAILURE
     Dosage: 25MG BEDTIME PO
     Route: 048
     Dates: start: 20030801, end: 20100111

REACTIONS (5)
  - APPARENT DEATH [None]
  - EPISTAXIS [None]
  - HEADACHE [None]
  - HEART RATE INCREASED [None]
  - VISUAL IMPAIRMENT [None]
